FAERS Safety Report 5688764-0 (Version None)
Quarter: 2008Q1

REPORT INFORMATION
  Report Type: 
  Country: None (occurrence: None)
  Receive Date: 20080331
  Receipt Date: 20080325
  Transmission Date: 20080703
  Serious: Yes (Disabling, Other)
  Sender: FDA-Public Use
  Company Number: US-ASTRAZENECA-2008UW05964

PATIENT
  Age: 53 Year
  Sex: Male
  Weight: 81.6 kg

DRUGS (6)
  1. CRESTOR [Suspect]
     Route: 048
     Dates: start: 20050101
  2. ASPIRIN [Concomitant]
  3. EXFORGE [Concomitant]
  4. ATENOLOL [Concomitant]
     Route: 048
  5. NEXIUM [Concomitant]
     Route: 048
  6. VITAMIN B1 [Concomitant]

REACTIONS (5)
  - FALL [None]
  - MUSCLE SPASMS [None]
  - MUSCULAR WEAKNESS [None]
  - NERVE INJURY [None]
  - PAIN IN EXTREMITY [None]
